FAERS Safety Report 9247738 (Version 8)
Quarter: 2015Q4

REPORT INFORMATION
  Report Type: Spontaneous
  Country: US (occurrence: US)
  Receive Date: 20130423
  Receipt Date: 20151229
  Transmission Date: 20160305
  Serious: Yes (Hospitalization, Other)
  Sender: FDA-Public Use
  Company Number: US-PFIZER INC-2013125082

PATIENT
  Age: 45 Year
  Sex: Female
  Weight: 110 kg

DRUGS (6)
  1. LYRICA [Suspect]
     Active Substance: PREGABALIN
     Indication: FIBROMYALGIA
     Dosage: 300 MG, 2X/DAY
     Route: 048
     Dates: start: 200507, end: 201307
  2. LYRICA [Suspect]
     Active Substance: PREGABALIN
     Indication: SEIZURE
     Dosage: 200 MG, 3X/DAY
     Route: 048
     Dates: start: 201307, end: 201308
  3. LYRICA [Suspect]
     Active Substance: PREGABALIN
     Dosage: 300 MG, 3X/DAY
     Dates: start: 2005
  4. DILANTIN [Suspect]
     Active Substance: PHENYTOIN
     Indication: EPILEPSY
     Dosage: UNK
     Dates: start: 200507
  5. DILANTIN [Suspect]
     Active Substance: PHENYTOIN
     Indication: SEIZURE
     Dosage: 30 MG, (12 PILLS EVERYDAY)
     Dates: start: 2005
  6. ALEVE [Concomitant]
     Active Substance: NAPROXEN SODIUM
     Dosage: UNK

REACTIONS (13)
  - Seizure [Unknown]
  - Face injury [Unknown]
  - Weight increased [Recovering/Resolving]
  - Epilepsy [Not Recovered/Not Resolved]
  - Anticonvulsant drug level decreased [Unknown]
  - Appetite disorder [Recovering/Resolving]
  - Hunger [Recovering/Resolving]
  - Overdose [Unknown]
  - Facial bones fracture [Unknown]
  - Fall [Unknown]
  - Jaw fracture [Unknown]
  - Drug dispensing error [Unknown]
  - Head injury [Unknown]

NARRATIVE: CASE EVENT DATE: 201307
